FAERS Safety Report 5600668-8 (Version None)
Quarter: 2008Q1

REPORT INFORMATION
  Report Type: 
  Country: None (occurrence: None)
  Receive Date: 20080123
  Receipt Date: 20080111
  Transmission Date: 20080703
  Serious: Yes (Hospitalization)
  Sender: FDA-Public Use
  Company Number: US-PFIZER INC-2008003599

PATIENT
  Sex: Female
  Weight: 95.454 kg

DRUGS (5)
  1. DILANTIN [Suspect]
     Indication: EPILEPSY
     Route: 048
  2. IRON [Suspect]
  3. CARBIDOPA [Concomitant]
  4. LEVODOPA [Concomitant]
  5. DARVOCET [Concomitant]

REACTIONS (3)
  - ANAEMIA [None]
  - ANTICONVULSANT DRUG LEVEL DECREASED [None]
  - STOMACH DISCOMFORT [None]
